FAERS Safety Report 10523186 (Version 1)
Quarter: 2014Q4

REPORT INFORMATION
  Report Type: Spontaneous
  Country: IT (occurrence: None)
  Receive Date: 20141010
  Receipt Date: 20141010
  Transmission Date: 20150528
  Serious: No
  Sender: FDA-Public Use
  Company Number: 2014SCAL000159

PATIENT
  Age: 74 Year
  Sex: Female

DRUGS (3)
  1. VALSARTAN AND HYDROCHLOROTHIAZIDE [Suspect]
     Active Substance: HYDROCHLOROTHIAZIDE\VALSARTAN
     Indication: PRODUCT USED FOR UNKNOWN INDICATION
  2. LITHIUM CARBONATE (LITHIUM CARBONATE) UNKNOWN [Suspect]
     Active Substance: LITHIUM CARBONATE
     Indication: PRODUCT USED FOR UNKNOWN INDICATION
  3. CLOMIPRAMINE [Concomitant]
     Active Substance: CLOMIPRAMINE

REACTIONS (5)
  - Parkinsonism [None]
  - Toxicity to various agents [None]
  - Drug interaction [None]
  - Antipsychotic drug level increased [None]
  - Hypothyroidism [None]
